FAERS Safety Report 15863398 (Version 7)
Quarter: 2020Q2

REPORT INFORMATION
  Report Type: Report from Study
  Country: RO (occurrence: RO)
  Receive Date: 20190124
  Receipt Date: 20200629
  Transmission Date: 20200713
  Serious: Yes (Congenital Anomaly, Other)
  Sender: FDA-Public Use
  Company Number: RO-MYLANLABS-2019M1006197

PATIENT
  Age: 5 Year
  Sex: Male
  Weight: 3 kg

DRUGS (7)
  1. COMBIVIR [Suspect]
     Active Substance: LAMIVUDINE\ZIDOVUDINE
     Dosage: 900 MILLIGRAM, QD
     Route: 064
  2. LAMIVUDINE/ZIDOVUDINE [Suspect]
     Active Substance: LAMIVUDINE\ZIDOVUDINE
     Indication: ANTIRETROVIRAL THERAPY
     Dosage: UNK UNK, QD
     Route: 064
  3. COMBIVIR [Suspect]
     Active Substance: LAMIVUDINE\ZIDOVUDINE
     Dosage: TOTAL DAILY DOSE: 1 TAB/CAPS
     Route: 064
  4. MILK POWDER [Concomitant]
     Indication: PRODUCT USED FOR UNKNOWN INDICATION
     Dosage: UNK
  5. COMBIVIR [Suspect]
     Active Substance: LAMIVUDINE\ZIDOVUDINE
     Indication: ANTIRETROVIRAL THERAPY
     Dosage: MATERNAL DOSE: ZIDOVUDINE (300 MG BID, ORAL) LAMIVUDINE (150 MG BID, ORAL))
     Route: 064
  6. PENICILLIN V POTASSIUM. [Suspect]
     Active Substance: PENICILLIN V POTASSIUM
     Indication: PRODUCT USED FOR UNKNOWN INDICATION
     Dosage: UNK
     Route: 064
  7. NEVIRAPINE. [Suspect]
     Active Substance: NEVIRAPINE
     Indication: PRODUCT USED FOR UNKNOWN INDICATION
     Dosage: 200 MILLIGRAM, BID
     Route: 064

REACTIONS (9)
  - Ataxia [Unknown]
  - Attention deficit hyperactivity disorder [Unknown]
  - Foetal exposure during pregnancy [Recovered/Resolved]
  - Dandy-Walker syndrome [Not Recovered/Not Resolved]
  - Macrocephaly [Unknown]
  - Neurodevelopmental disorder [Unknown]
  - Congenital central nervous system anomaly [Unknown]
  - Premature baby [Unknown]
  - Speech disorder developmental [Unknown]
